FAERS Safety Report 4638598-0 (Version None)
Quarter: 2005Q2

REPORT INFORMATION
  Report Type: 
  Country: None (occurrence: None)
  Receive Date: 20050325
  Receipt Date: 20041203
  Transmission Date: 20051028
  Serious: No
  Sender: FDA-Public Use
  Company Number: USA041184203

PATIENT
  Age: 66 Year
  Sex: Male
  Weight: 75 kg

DRUGS (5)
  1. FORTEO [Suspect]
     Indication: OSTEOPOROSIS
     Dosage: 20 UG DAY
     Dates: start: 20041108, end: 20041108
  2. SEREVENT [Concomitant]
  3. ASMACORT (TRIAMCINOLONE ACETONIDE) [Concomitant]
  4. THEO-DUR [Concomitant]
  5. LEVAQUIN [Concomitant]

REACTIONS (3)
  - BACK PAIN [None]
  - CHEST DISCOMFORT [None]
  - CHEST PAIN [None]
